FAERS Safety Report 7916607-0 (Version None)
Quarter: 2011Q4

REPORT INFORMATION
  Report Type: 
  Country: None (occurrence: None)
  Receive Date: 20111116
  Receipt Date: 20111114
  Transmission Date: 20120403
  Serious: No
  Sender: FDA-Public Use
  Company Number: US-PFIZER INC-2011278536

PATIENT
  Sex: Male

DRUGS (3)
  1. LIPITOR [Suspect]
     Dosage: 10 MG, 2X/DAY
  2. LIPITOR [Suspect]
     Dosage: 20 MG, DAILY
  3. PLAVIX [Concomitant]
     Dosage: UNK

REACTIONS (1)
  - NAUSEA [None]
